FAERS Safety Report 20962428 (Version 1)
Quarter: 2022Q2

REPORT INFORMATION
  Report Type: Spontaneous
  Country: RU (occurrence: RU)
  Receive Date: 20220615
  Receipt Date: 20220615
  Transmission Date: 20220720
  Serious: Yes (Other)
  Sender: FDA-Public Use
  Company Number: None

PATIENT

DRUGS (2)
  1. ONCASPAR [Suspect]
     Active Substance: PEGASPARGASE
     Indication: Acute leukaemia
     Dosage: UNK
     Route: 042
     Dates: start: 20220106, end: 20220106
  2. ONCASPAR [Suspect]
     Active Substance: PEGASPARGASE
     Dosage: 500 IU, UNK
     Route: 042
     Dates: start: 20220123, end: 20220123

REACTIONS (5)
  - Cough [Recovering/Resolving]
  - Dysphonia [Recovering/Resolving]
  - Erythema [Recovering/Resolving]
  - Face oedema [Recovering/Resolving]
  - Vomiting [Recovering/Resolving]

NARRATIVE: CASE EVENT DATE: 20220123
